FAERS Safety Report 5636860-6 (Version None)
Quarter: 2008Q1

REPORT INFORMATION
  Report Type: 
  Country: None (occurrence: None)
  Receive Date: 20080219
  Receipt Date: 20080130
  Transmission Date: 20080703
  Serious: Yes (Hospitalization)
  Sender: FDA-Public Use
  Company Number: 8029703

PATIENT
  Age: 18 Year
  Sex: Male

DRUGS (2)
  1. KEPPRA [Suspect]
     Indication: TEMPORAL LOBE EPILEPSY
     Dosage: 3000 MG /D
  2. TOPAMAX [Suspect]
     Indication: TEMPORAL LOBE EPILEPSY
     Dosage: 300 MG /D

REACTIONS (3)
  - APHASIA [None]
  - EPILEPSY [None]
  - PSYCHOTIC DISORDER [None]
